FAERS Safety Report 4455829-0 (Version None)
Quarter: 2004Q3

REPORT INFORMATION
  Report Type: 
  Country: None (occurrence: None)
  Receive Date: 20040922
  Receipt Date: 20040825
  Transmission Date: 20050211
  Serious: Yes (Other)
  Sender: FDA-Public Use
  Company Number: AU-BRISTOL-MYERS SQUIBB COMPANY-12684007

PATIENT
  Age: 72 Year
  Sex: Male

DRUGS (5)
  1. ABILIFY [Suspect]
     Route: 048
     Dates: end: 20040413
  2. METFORMIN HCL [Concomitant]
  3. LITHIUM [Concomitant]
  4. PARNATE [Concomitant]
  5. CHOLESTEROL MEDICATION [Concomitant]
     Indication: BLOOD CHOLESTEROL INCREASED

REACTIONS (4)
  - DROOLING [None]
  - DYSTONIA [None]
  - SPEECH DISORDER [None]
  - TONGUE OEDEMA [None]
